FAERS Safety Report 16858134 (Version 1)
Quarter: 2019Q3

REPORT INFORMATION
  Report Type: Report from Study
  Country: DE (occurrence: DE)
  Receive Date: 20190926
  Receipt Date: 20190926
  Transmission Date: 20191005
  Serious: Yes (Death)
  Sender: FDA-Public Use
  Company Number: DE-JNJFOC-20170715943

PATIENT

DRUGS (3)
  1. ETOPOSIDE. [Suspect]
     Active Substance: ETOPOSIDE
     Indication: SOFT TISSUE SARCOMA
     Dosage: ON DAY 1 AND DAY 4
     Route: 065
  2. CAELYX [Suspect]
     Active Substance: DOXORUBICIN HYDROCHLORIDE
     Indication: SOFT TISSUE SARCOMA
     Dosage: FOR 4 CYCLES Q 3 WEEKS
     Route: 065
  3. IFOSFAMIDE. [Suspect]
     Active Substance: IFOSFAMIDE
     Indication: SOFT TISSUE SARCOMA
     Dosage: ON DAY 1- 4
     Route: 065

REACTIONS (4)
  - Toxicity to various agents [Unknown]
  - Off label use [Unknown]
  - Product use in unapproved indication [Unknown]
  - Death [Fatal]
